FAERS Safety Report 9801839 (Version 2)
Quarter: 2014Q1

REPORT INFORMATION
  Report Type: Spontaneous
  Country: US (occurrence: US)
  Receive Date: 20140107
  Receipt Date: 20140116
  Transmission Date: 20141002
  Serious: No
  Sender: FDA-Public Use
  Company Number: US-PFIZER INC-2014003015

PATIENT
  Age: 42 Year
  Sex: Female

DRUGS (7)
  1. ENBREL [Suspect]
     Indication: RHEUMATOID ARTHRITIS
     Dosage: 50 MG, WEEKLY
     Dates: start: 2011
  2. ENBREL [Suspect]
     Dosage: 50 MG, WEEKLY
     Dates: start: 201312
  3. XELJANZ [Suspect]
     Dosage: UNK
  4. ACTEMRA [Suspect]
     Dosage: UNK
  5. ORENCIA [Suspect]
     Dosage: UNK
  6. CIMZIA [Suspect]
     Dosage: UNK
  7. SIMPONI [Suspect]
     Dosage: UNK

REACTIONS (11)
  - Urinary incontinence [Not Recovered/Not Resolved]
  - Headache [Recovered/Resolved]
  - Abdominal discomfort [Recovered/Resolved]
  - Arthralgia [Not Recovered/Not Resolved]
  - Mobility decreased [Not Recovered/Not Resolved]
  - Drug effect decreased [Not Recovered/Not Resolved]
  - Hypoaesthesia oral [Recovered/Resolved]
  - Paraesthesia oral [Recovered/Resolved]
  - Dysgeusia [Recovered/Resolved]
  - Injection site erythema [Not Recovered/Not Resolved]
  - Injection site swelling [Not Recovered/Not Resolved]
